FAERS Safety Report 5400612-2 (Version None)
Quarter: 2007Q3

REPORT INFORMATION
  Report Type: 
  Country: None (occurrence: None)
  Receive Date: 20070730
  Receipt Date: 20070222
  Transmission Date: 20080115
  Serious: No
  Sender: FDA-Public Use
  Company Number: A0640578A

PATIENT
  Sex: Male

DRUGS (2)
  1. ZANTAC 150 [Suspect]
     Indication: GASTRIC ULCER
     Dosage: 150MG TWICE PER DAY
     Route: 048
     Dates: end: 20070221
  2. NO CONCURRENT MEDICATION [Concomitant]

REACTIONS (1)
  - DRUG SCREEN POSITIVE [None]
